FAERS Safety Report 9001658 (Version 4)
Quarter: 2013Q2

REPORT INFORMATION
  Report Type: Spontaneous
  Country: US (occurrence: US)
  Receive Date: 20130107
  Receipt Date: 20130501
  Transmission Date: 20140414
  Serious: Yes (Hospitalization, Disabling, Other)
  Sender: FDA-Public Use
  Company Number: US-009507513-1301USA000933

PATIENT
  Sex: Female
  Weight: 57.14 kg

DRUGS (8)
  1. FOSAMAX [Suspect]
     Indication: OSTEOPOROSIS
     Dosage: 70 MG, UNK
     Route: 048
     Dates: start: 200110, end: 200803
  2. FOSAMAX [Suspect]
     Indication: OSTEOPENIA
  3. ALENDRONATE SODIUM [Suspect]
     Indication: OSTEOPENIA
     Dosage: 70 MG, QW
     Route: 048
     Dates: start: 200803, end: 200909
  4. BONIVA [Suspect]
     Indication: OSTEOPENIA
     Dosage: 150 MG, UNK
     Route: 048
     Dates: start: 20070216, end: 2007
  5. ACTIVELLA [Concomitant]
     Indication: HORMONE REPLACEMENT THERAPY
     Dosage: 1 MG/ 5 MG
     Route: 048
     Dates: start: 1995
  6. CALCIUM (UNSPECIFIED) (+) VITAMIN D (UNSPECIFIED) [Concomitant]
     Dosage: 600 MG, TID
     Route: 048
     Dates: start: 1995
  7. ASPIRIN [Concomitant]
     Dosage: 81 MG, QD
     Route: 048
     Dates: start: 1995
  8. CHOLECALCIFEROL [Concomitant]
     Dosage: 5000 IU, QD
     Route: 048
     Dates: start: 1995

REACTIONS (30)
  - Femur fracture [Not Recovered/Not Resolved]
  - Fall [Not Recovered/Not Resolved]
  - Dehydration [Unknown]
  - Cough [Unknown]
  - Post procedural haematoma [Recovered/Resolved]
  - International normalised ratio increased [Recovered/Resolved]
  - Pain [Recovered/Resolved]
  - Open reduction of fracture [Unknown]
  - Hip fracture [Not Recovered/Not Resolved]
  - Hypokalaemia [Recovered/Resolved]
  - Anaemia postoperative [Recovered/Resolved]
  - Hypomagnesaemia [Unknown]
  - Conjunctival hyperaemia [Unknown]
  - Depression [Unknown]
  - Pain [Unknown]
  - Fluid retention [Unknown]
  - Infection [Unknown]
  - Urinary tract infection [Unknown]
  - Insomnia [Unknown]
  - Migraine [Unknown]
  - Osteoarthritis [Unknown]
  - Body height decreased [Unknown]
  - Anxiety [Unknown]
  - Asthma [Unknown]
  - Limb reduction defect [Not Recovered/Not Resolved]
  - Abdominal pain upper [Recovered/Resolved]
  - Constipation [Recovered/Resolved]
  - Diarrhoea [Recovered/Resolved]
  - Hypersensitivity [Unknown]
  - Gastrooesophageal reflux disease [Unknown]
